FAERS Safety Report 15729481 (Version 1)
Quarter: 2018Q4

REPORT INFORMATION
  Report Type: Spontaneous
  Country: US (occurrence: US)
  Receive Date: 20181130
  Receipt Date: 20181130
  Transmission Date: 20190205
  Serious: No
  Sender: FDA-Public Use
  Company Number: None

PATIENT
  Age: 38 Year
  Sex: Female

DRUGS (1)
  1. COSENTYX [Suspect]
     Active Substance: SECUKINUMAB
     Dosage: ?          OTHER FREQUENCY:UNKNOWN;?
     Route: 058
     Dates: start: 20180815

REACTIONS (4)
  - Viral infection [None]
  - Oropharyngeal pain [None]
  - Secretion discharge [None]
  - Mucosal discolouration [None]

NARRATIVE: CASE EVENT DATE: 20181117
